FAERS Safety Report 9464424 (Version 2)
Quarter: 2013Q3

REPORT INFORMATION
  Report Type: Spontaneous
  Country: US (occurrence: US)
  Receive Date: 20130819
  Receipt Date: 20130828
  Transmission Date: 20140515
  Serious: Yes (Death, Hospitalization)
  Sender: FDA-Public Use
  Company Number: US-GILEAD-2013-0081426

PATIENT
  Sex: Female

DRUGS (13)
  1. LETAIRIS [Suspect]
     Indication: PULMONARY ARTERIAL HYPERTENSION
     Dosage: 5 MG, QD
     Route: 048
     Dates: start: 20121107, end: 20121218
  2. LETAIRIS [Suspect]
     Indication: SCLERODERMA
     Dosage: 10 MG, QD
     Route: 048
     Dates: start: 20121219, end: 20130731
  3. TYVASO [Concomitant]
  4. LEVOTHYROXINE [Concomitant]
  5. SIMVASTATIN [Concomitant]
  6. SULFAMETHOXAZOLE AND TRIMETHOPRIM [Concomitant]
  7. FUROSEMIDE [Concomitant]
  8. CARVEDILOL [Concomitant]
  9. OMEPRAZOLE [Concomitant]
  10. PREDNISONE [Concomitant]
  11. INSULIN HM NPH [Concomitant]
  12. INSULIN REGULAR HM [Concomitant]
  13. OXYGEN [Concomitant]

REACTIONS (11)
  - Septic shock [Fatal]
  - Cardiogenic shock [Fatal]
  - Enterococcal bacteraemia [Fatal]
  - Pneumonia staphylococcal [Fatal]
  - Clostridium difficile infection [Fatal]
  - Systemic candida [Fatal]
  - Peritonitis bacterial [Fatal]
  - Cardiac failure congestive [Unknown]
  - Hypoxia [Unknown]
  - Pneumonia [Unknown]
  - Dyspnoea [Unknown]
